FAERS Safety Report 17225033 (Version 1)
Quarter: 2019Q4

REPORT INFORMATION
  Report Type: Spontaneous
  Country: US (occurrence: US)
  Receive Date: 20191209
  Receipt Date: 20191209
  Transmission Date: 20200122
  Serious: Yes (Life-Threatening, Other)
  Sender: FDA-Public Use
  Company Number: None

PATIENT
  Age: 51 Year
  Sex: Female
  Weight: 92.99 kg

DRUGS (2)
  1. RIBAVIRIN 200MG TAB AUR #168 [Suspect]
     Active Substance: RIBAVIRIN
     Indication: CHRONIC HEPATITIS C
     Dosage: ?          OTHER FREQUENCY:3 TABS BID X12 WKS;?
     Route: 048
     Dates: start: 20191024
  2. VOSEVI [Suspect]
     Active Substance: SOFOSBUVIR\VELPATASVIR\VOXILAPREVIR
     Indication: CHRONIC HEPATITIS C
     Dosage: ?          OTHER DOSE:400/100MG;OTHER FREQUENCY:1 TAB QD X 12 WKS;?
     Route: 048
     Dates: start: 20191024

REACTIONS (5)
  - Decreased appetite [None]
  - Asthenia [None]
  - Obsessive-compulsive disorder [None]
  - Suicidal ideation [None]
  - Depression [None]

NARRATIVE: CASE EVENT DATE: 20191209
